FAERS Safety Report 7521224-0 (Version None)
Quarter: 2011Q2

REPORT INFORMATION
  Report Type: 
  Country: None (occurrence: None)
  Receive Date: 20110603
  Receipt Date: 20101210
  Transmission Date: 20111010
  Serious: Yes (Other)
  Sender: FDA-Public Use
  Company Number: US-BAYER-2010-004264

PATIENT
  Age: 95 Year
  Sex: Female

DRUGS (2)
  1. CIPRO [Suspect]
     Dosage: 250 MG, UNK
  2. CIPRO [Suspect]
     Indication: PRODUCT USED FOR UNKNOWN INDICATION
     Dosage: 500 MG, UNK

REACTIONS (1)
  - RECTAL HAEMORRHAGE [None]
